FAERS Safety Report 8136831-4 (Version None)
Quarter: 2012Q1

REPORT INFORMATION
  Report Type: 
  Country: None (occurrence: None)
  Receive Date: 20120214
  Receipt Date: 20120207
  Transmission Date: 20120608
  Serious: Yes (Hospitalization)
  Sender: FDA-Public Use
  Company Number: NZ-B.I. PHARMACEUTICALS,INC./RIDGEFIELD-2012-AU-00217AU

PATIENT
  Sex: Female
  Weight: 54.7 kg

DRUGS (6)
  1. CALCIUM CARBONATE [Concomitant]
     Dosage: 1.25 MG
     Dates: start: 20090424
  2. VITAMINS BPC [Concomitant]
     Dosage: 2 TABS MANE
     Dates: start: 20090424
  3. FOSAMAX PLUS D [Concomitant]
     Dosage: 70 MG/140 MCG ONCE WEEKLY
     Dates: start: 20100330
  4. VENTOLIN [Concomitant]
     Dosage: 400 MCG
     Dates: start: 20100223
  5. PRADAXA [Suspect]
     Indication: ATRIAL FIBRILLATION
     Dosage: 220 MG
     Dates: start: 20110722, end: 20110805
  6. CHOLECALCIFEROL [Concomitant]
     Dosage: 0.0417 MG
     Dates: start: 20101209

REACTIONS (3)
  - ESCHERICHIA URINARY TRACT INFECTION [None]
  - CARDIAC FAILURE CONGESTIVE [None]
  - ATRIAL THROMBOSIS [None]
